FAERS Safety Report 13270106 (Version 1)
Quarter: 2017Q1

REPORT INFORMATION
  Report Type: Spontaneous
  Country: US (occurrence: US)
  Receive Date: 20170224
  Receipt Date: 20170224
  Transmission Date: 20170428
  Serious: No
  Sender: FDA-Public Use
  Company Number: US-PFIZER INC-2017081589

PATIENT
  Age: 65 Year
  Sex: Male

DRUGS (6)
  1. XELJANZ XR [Suspect]
     Active Substance: TOFACITINIB CITRATE
     Indication: RHEUMATOID ARTHRITIS
     Dosage: 11 MG, UNK
     Route: 048
     Dates: start: 201609
  2. FISH OIL [Concomitant]
     Active Substance: FISH OIL
     Dosage: UNK
  3. LUTEIN [Concomitant]
     Active Substance: LUTEIN
     Dosage: UNK
  4. TRAMADOL. [Concomitant]
     Active Substance: TRAMADOL
     Dosage: UNK
  5. XELJANZ XR [Suspect]
     Active Substance: TOFACITINIB CITRATE
     Dosage: 11 MG, 1X/DAY
     Route: 048
     Dates: start: 201612
  6. COENZYME Q10 [Concomitant]
     Active Substance: UBIDECARENONE
     Dosage: UNK

REACTIONS (1)
  - Laboratory test abnormal [Recovered/Resolved]
